FAERS Safety Report 4466961-X (Version None)
Quarter: 2004Q4

REPORT INFORMATION
  Report Type: 
  Country: None (occurrence: None)
  Receive Date: 20041006
  Receipt Date: 20040819
  Transmission Date: 20050328
  Serious: Yes (Other)
  Sender: FDA-Public Use
  Company Number: 200418251GDDC

PATIENT
  Age: 69 Year
  Sex: Male

DRUGS (3)
  1. FLUDEX [Suspect]
     Indication: HYPERTENSION
     Route: 048
     Dates: start: 20030801, end: 20040128
  2. LITHIUM CARBONATE [Suspect]
     Indication: BIPOLAR DISORDER
     Route: 048
     Dates: start: 19990101, end: 20040128
  3. ELTROXIN [Concomitant]

REACTIONS (5)
  - DEHYDRATION [None]
  - DRUG INTERACTION [None]
  - DRUG LEVEL INCREASED [None]
  - INFLUENZA LIKE ILLNESS [None]
  - RENAL FAILURE ACUTE [None]
